FAERS Safety Report 5472349-5 (Version None)
Quarter: 2007Q3

REPORT INFORMATION
  Report Type: 
  Country: None (occurrence: None)
  Receive Date: 20070930
  Receipt Date: 20070917
  Transmission Date: 20080115
  Serious: Yes (Other)
  Sender: FDA-Public Use
  Company Number: US-SHR-US-2007-035102

PATIENT
  Age: 49 Year
  Sex: Female

DRUGS (2)
  1. FLUDARABINE FOR INJECTION [Suspect]
     Indication: LYMPHOMA
     Dosage: 48.25 MG/D
     Dates: start: 19980518, end: 19981016
  2. RITUXIMAB [Suspect]
     Indication: LYMPHOMA
     Dosage: 724 MG
     Dates: start: 19980511, end: 19981009

REACTIONS (5)
  - ACUTE MYELOID LEUKAEMIA [None]
  - ADENOCARCINOMA [None]
  - BREAST CANCER FEMALE [None]
  - CHROMOSOME ANALYSIS ABNORMAL [None]
  - PANCYTOPENIA [None]
